FAERS Safety Report 5212240-2 (Version None)
Quarter: 2006Q4

REPORT INFORMATION
  Report Type: 
  Country: None (occurrence: None)
  Receive Date: 20061130
  Receipt Date: 20051109
  Transmission Date: 20070319
  Serious: Yes (Other)
  Sender: FDA-Public Use
  Company Number: WAES 0511USA01487

PATIENT

DRUGS (4)
  1. FOSAMAX [Suspect]
     Indication: OSTEOPOROSIS
     Dosage: 70 MG/WKY/PO
     Route: 048
  2. DYAZIDE [Concomitant]
  3. EFFEXOR [Concomitant]
  4. TRAZODONE HYDROCHLORIDE [Concomitant]

REACTIONS (1)
  - OSTEONECROSIS [None]
